FAERS Safety Report 20441664 (Version 1)
Quarter: 2022Q1

REPORT INFORMATION
  Report Type: Spontaneous
  Country: CA (occurrence: CA)
  Receive Date: 20220208
  Receipt Date: 20220208
  Transmission Date: 20220423
  Serious: Yes (Other)
  Sender: FDA-Public Use
  Company Number: CA-ABBVIE-22K-028-4268283-00

PATIENT
  Sex: Male

DRUGS (1)
  1. VALPROIC ACID [Suspect]
     Active Substance: VALPROIC ACID
     Indication: Product used for unknown indication
     Route: 048

REACTIONS (6)
  - Seizure [Unknown]
  - Headache [Unknown]
  - Anxiety [Unknown]
  - Impulsive behaviour [Unknown]
  - Product label issue [Unknown]
  - Adverse event [Unknown]
